FAERS Safety Report 19470757 (Version 4)
Quarter: 2021Q3

REPORT INFORMATION
  Report Type: Spontaneous
  Country: US (occurrence: US)
  Receive Date: 20210628
  Receipt Date: 20210930
  Transmission Date: 20211014
  Serious: Yes (Other)
  Sender: FDA-Public Use
  Company Number: US-BAYER-2021-165893

PATIENT
  Age: 35 Year
  Sex: Male

DRUGS (6)
  1. KOGENATE FS [Suspect]
     Active Substance: ANTIHEMOPHILIC FACTOR, HUMAN RECOMBINANT
     Indication: FACTOR VIII DEFICIENCY
     Dosage: 2 DF; USED FOR ACTIVE RIGHT ANKLE BLEED
     Route: 042
  2. KOGENATE FS [Suspect]
     Active Substance: ANTIHEMOPHILIC FACTOR, HUMAN RECOMBINANT
     Indication: FACTOR VIII DEFICIENCY
     Dosage: 4 DF; USED FROM MINOR CALF MUSCLE BLEED, ONE DOSE PER DAY
     Route: 042
  3. KOGENATE FS [Suspect]
     Active Substance: ANTIHEMOPHILIC FACTOR, HUMAN RECOMBINANT
     Indication: FACTOR VIII DEFICIENCY
     Dosage: UNK; USED FOR POST?PROCEDURE AS EXTRA DOSES
     Dates: start: 20210909
  4. KOGENATE FS [Suspect]
     Active Substance: ANTIHEMOPHILIC FACTOR, HUMAN RECOMBINANT
     Indication: FACTOR VIII DEFICIENCY
     Dosage: 3800 U, TWICE WEEKLY AND AS NEEDED
     Route: 042
     Dates: start: 20210628
  5. KOGENATE FS [Suspect]
     Active Substance: ANTIHEMOPHILIC FACTOR, HUMAN RECOMBINANT
     Indication: FACTOR VIII DEFICIENCY
     Dosage: 3800 U, TWICE WEEKLY/AS NEEDED
     Route: 042
     Dates: start: 20210603
  6. KOGENATE FS [Suspect]
     Active Substance: ANTIHEMOPHILIC FACTOR, HUMAN RECOMBINANT
     Indication: FACTOR VIII DEFICIENCY
     Dosage: 3800 UNK; 2 TIMES A WEEK AND AS NEEDED
     Route: 042
     Dates: start: 20210728

REACTIONS (4)
  - Clavicle fracture [None]
  - Medical procedure [None]
  - Muscle haemorrhage [Recovering/Resolving]
  - Haemarthrosis [None]

NARRATIVE: CASE EVENT DATE: 20210731
